FAERS Safety Report 4535783-3 (Version None)
Quarter: 2004Q4

REPORT INFORMATION
  Report Type: 
  Country: None (occurrence: None)
  Receive Date: 20041223
  Receipt Date: 20040308
  Transmission Date: 20050328
  Serious: No
  Sender: FDA-Public Use
  Company Number: US-GLAXOSMITHKLINE-A0501630A

PATIENT
  Age: 34 Year
  Sex: Female

DRUGS (4)
  1. BECONASE [Suspect]
     Dosage: 4SPR TWICE PER DAY
     Route: 045
  2. FLONASE [Suspect]
     Dosage: 2SPR PER DAY
     Route: 045
  3. CLARITIN-D [Concomitant]
  4. ALLEGRA-D [Concomitant]

REACTIONS (3)
  - DISCOMFORT [None]
  - NASAL DISCOMFORT [None]
  - RETCHING [None]
